FAERS Safety Report 4368567-X (Version None)
Quarter: 2004Q2

REPORT INFORMATION
  Report Type: 
  Country: None (occurrence: None)
  Receive Date: 20040528
  Receipt Date: 20040517
  Transmission Date: 20050107
  Serious: No
  Sender: FDA-Public Use
  Company Number: 2004UW10204

PATIENT
  Age: 88 Year
  Sex: Female

DRUGS (3)
  1. SEROQUEL [Suspect]
     Indication: AGGRESSION
     Dosage: 2-3 TABS OF 25 MG QAM AND 75 MG QHS
     Dates: start: 20040101
  2. RISPERIDONE [Concomitant]
  3. ATIVAN [Concomitant]

REACTIONS (8)
  - AGGRESSION [None]
  - BLOOD PRESSURE DECREASED [None]
  - DEPRESSED LEVEL OF CONSCIOUSNESS [None]
  - DYSPNOEA [None]
  - MUSCULOSKELETAL STIFFNESS [None]
  - SPEECH DISORDER [None]
  - UPPER LIMB DEFORMITY [None]
  - VISUAL DISTURBANCE [None]
